FAERS Safety Report 6806032-8 (Version None)
Quarter: 2010Q2

REPORT INFORMATION
  Report Type: 
  Country: None (occurrence: None)
  Receive Date: 20100629
  Receipt Date: 20100614
  Transmission Date: 20101027
  Serious: Yes (Other)
  Sender: FDA-Public Use
  Company Number: FR-AMGEN-QUU092698

PATIENT

DRUGS (2)
  1. ETANERCEPT [Suspect]
     Indication: DRUG USE FOR UNKNOWN INDICATION
     Dosage: UNKNOWN
  2. ANTINEOPLASTIC AGENTS [Concomitant]

REACTIONS (1)
  - PULMONARY GRANULOMA [None]
